FAERS Safety Report 5018422-7 (Version None)
Quarter: 2006Q2

REPORT INFORMATION
  Report Type: 
  Country: None (occurrence: None)
  Receive Date: 20060530
  Receipt Date: 20060515
  Transmission Date: 20061013
  Serious: Yes (Disabling, Other)
  Sender: FDA-Public Use
  Company Number: 2006063960

PATIENT
  Age: 72 Year
  Sex: Male

DRUGS (3)
  1. VIAGRA [Suspect]
     Indication: ILL-DEFINED DISORDER
     Dates: end: 20030101
  2. LEVITRA [Suspect]
     Indication: ERECTILE DYSFUNCTION
     Dosage: 10 MG, ORAL
     Route: 048
     Dates: start: 20031201
  3. VITAMINS (VITAMINS) [Concomitant]

REACTIONS (2)
  - BLINDNESS UNILATERAL [None]
  - CHORIORETINOPATHY [None]
